FAERS Safety Report 4492430-7 (Version None)
Quarter: 2004Q4

REPORT INFORMATION
  Report Type: 
  Country: None (occurrence: None)
  Receive Date: 20041029
  Receipt Date: 20041018
  Transmission Date: 20050328
  Serious: Yes (Hospitalization)
  Sender: FDA-Public Use
  Company Number: 2004013642

PATIENT
  Age: 58 Year
  Sex: Female

DRUGS (10)
  1. ATARAX [Suspect]
     Indication: PREMEDICATION
     Dosage: 100 MG, ORAL
     Route: 048
     Dates: start: 20040113, end: 20040113
  2. ZYRTEC [Suspect]
     Indication: ILL-DEFINED DISORDER
  3. COLOPEG (SODIUM BICARBONATE, POTASSIUM CHLORIDE, SODIUM CHLORIDE, SODI [Suspect]
     Indication: PREMEDICATION
     Dosage: ORAL
     Route: 048
     Dates: start: 20040113, end: 20040113
  4. PROPOFOL [Suspect]
     Indication: INDUCTION OF ANAESTHESIA
     Dosage: INTRAVENOUS
     Route: 042
     Dates: start: 20040114, end: 20040114
  5. OMEPRAZOLE [Suspect]
     Indication: PREMEDICATION
     Dosage: 20 MG, ORAL
     Route: 048
     Dates: start: 20040113, end: 20040113
  6. ATROPINE [Suspect]
     Indication: INDUCTION OF ANAESTHESIA
     Dosage: 0.5 MG, INTRAVENOUS
     Route: 042
     Dates: start: 20040114, end: 20040114
  7. SIMVASTATIN [Concomitant]
  8. BROMAZEPAM (BROMAZEPAM) [Concomitant]
  9. CALCIPOTRIOL (CALCIPOTRIOL) [Concomitant]
  10. ACETAMINOPHEN [Concomitant]

REACTIONS (6)
  - ACUTE GENERALISED EXANTHEMATOUS PUSTULOSIS [None]
  - CHILLS [None]
  - ERYTHEMA [None]
  - PSORIASIS [None]
  - PYREXIA [None]
  - SKIN TEST POSITIVE [None]
